FAERS Safety Report 5185464-0 (Version None)
Quarter: 2006Q4

REPORT INFORMATION
  Report Type: 
  Country: None (occurrence: None)
  Receive Date: 20061220
  Receipt Date: 20060724
  Transmission Date: 20070319
  Serious: No
  Sender: FDA-Public Use
  Company Number: US-GLAXOSMITHKLINE-A0613284A

PATIENT
  Age: 59 Year
  Sex: Male

DRUGS (2)
  1. NICODERM CQ [Suspect]
     Dates: start: 20060720, end: 20060723
  2. ERYTHROMYCIN [Concomitant]

REACTIONS (9)
  - ABNORMAL DREAMS [None]
  - DIARRHOEA [None]
  - ERUCTATION [None]
  - FLATULENCE [None]
  - MALAISE [None]
  - NAUSEA [None]
  - OVERDOSE [None]
  - RETCHING [None]
  - VOMITING [None]
